FAERS Safety Report 19621451 (Version 2)
Quarter: 2021Q3

REPORT INFORMATION
  Report Type: Other
  Country: US (occurrence: US)
  Receive Date: 20210728
  Receipt Date: 20210828
  Transmission Date: 20211014
  Serious: No
  Sender: FDA-Public Use
  Company Number: US-NEUROCRINE BIOSCIENCES INC.-2021NBI03972

PATIENT

DRUGS (3)
  1. STRATTERA [Concomitant]
     Active Substance: ATOMOXETINE HYDROCHLORIDE
     Dosage: 40 MILLIGRAM, QD
     Route: 048
  2. LITHIUM. [Concomitant]
     Active Substance: LITHIUM
     Dosage: 2 QAM + 1 QPM
     Route: 048
  3. INGREZZA [Suspect]
     Active Substance: VALBENAZINE
     Indication: TARDIVE DYSKINESIA
     Dosage: 40 MILLIGRAM, HS AT BED TIME
     Route: 048
     Dates: start: 20210709, end: 20210712

REACTIONS (3)
  - Asthenia [Recovered/Resolved]
  - Somnolence [Recovered/Resolved]
  - Therapeutic product effect incomplete [Unknown]

NARRATIVE: CASE EVENT DATE: 202107
